FAERS Safety Report 8625155-4 (Version None)
Quarter: 2012Q3

REPORT INFORMATION
  Report Type: 
  Country: None (occurrence: None)
  Receive Date: 20120827
  Receipt Date: 20120822
  Transmission Date: 20120928
  Serious: Yes (Death, Hospitalization)
  Sender: FDA-Public Use
  Company Number: US-BAXTER-2012BAX014507

PATIENT
  Sex: Male

DRUGS (2)
  1. DIANEAL [Suspect]
     Route: 033
     Dates: end: 20120802
  2. DIANEAL [Suspect]
     Indication: PERITONEAL DIALYSIS
     Route: 033
     Dates: end: 20120802

REACTIONS (2)
  - DEATH [None]
  - WOUND [None]
